FAERS Safety Report 6359700-9 (Version None)
Quarter: 2009Q3

REPORT INFORMATION
  Report Type: 
  Country: None (occurrence: None)
  Receive Date: 20090917
  Receipt Date: 20090916
  Transmission Date: 20100115
  Serious: Yes (Other)
  Sender: FDA-Public Use
  Company Number: US-PFIZER INC-2009249585

PATIENT
  Age: 59 Year
  Sex: Male
  Weight: 74.83 kg

DRUGS (2)
  1. VIAGRA [Suspect]
     Indication: ERECTILE DYSFUNCTION
     Dosage: 100 MG, UNK
     Dates: start: 20010101
  2. LIPITOR [Concomitant]
     Dosage: UNK

REACTIONS (1)
  - GLAUCOMA [None]
